APPROVED DRUG PRODUCT: DUO-MEDIHALER
Active Ingredient: ISOPROTERENOL HYDROCHLORIDE; PHENYLEPHRINE BITARTRATE
Strength: 0.16MG/INH;0.24MG/INH
Dosage Form/Route: AEROSOL, METERED;INHALATION
Application: N013296 | Product #001
Applicant: 3M PHARMACEUTICALS INC
Approved: Approved Prior to Jan 1, 1982 | RLD: No | RS: No | Type: DISCN